FAERS Safety Report 15516297 (Version 1)
Quarter: 2018Q4

REPORT INFORMATION
  Report Type: Report from Study
  Country: KR (occurrence: KR)
  Receive Date: 20181017
  Receipt Date: 20181017
  Transmission Date: 20190205
  Serious: Yes (Other)
  Sender: FDA-Public Use
  Company Number: KR-SUN PHARMACEUTICAL INDUSTRIES LTD-2018RR-187927

PATIENT
  Age: 64 Year
  Sex: Female

DRUGS (12)
  1. DI-METHYLEPHEDRINE HYDROCHLORIDE [Suspect]
     Active Substance: METHYLEPHEDRINE HYDROCHLORIDE, (+/-)-
     Indication: PRODUCT USED FOR UNKNOWN INDICATION
     Dosage: 393.75 MG, DAILY
     Route: 065
  2. CHLORPHENIRAMINE. [Suspect]
     Active Substance: CHLORPHENIRAMINE
     Indication: PRODUCT USED FOR UNKNOWN INDICATION
     Dosage: 45 MG, DAILY
     Route: 065
  3. REBAMIPIDE [Suspect]
     Active Substance: REBAMIPIDE
     Indication: PRODUCT USED FOR UNKNOWN INDICATION
     Dosage: 100 MG, DAILY
     Route: 065
  4. ACECLOFENAC [Suspect]
     Active Substance: ACECLOFENAC
     Indication: PRODUCT USED FOR UNKNOWN INDICATION
     Dosage: 100 MG, DAILY
     Route: 065
  5. STREPTOKINASE/STREPTODORNASE [Suspect]
     Active Substance: STREPTOKINASE-STREPTODORNASE
     Indication: PRODUCT USED FOR UNKNOWN INDICATION
     Dosage: 10000/2500 IU, DAILY
     Route: 065
  6. DIHYDROCODEINE [Suspect]
     Active Substance: DIHYDROCODEINE
     Indication: PRODUCT USED FOR UNKNOWN INDICATION
     Dosage: 150 MG, DAILY
     Route: 065
  7. RANITIDINE. [Suspect]
     Active Substance: RANITIDINE
     Indication: PRODUCT USED FOR UNKNOWN INDICATION
     Dosage: 300 MG, DAILY
     Route: 065
  8. GUAIFENESIN. [Suspect]
     Active Substance: GUAIFENESIN
     Indication: PRODUCT USED FOR UNKNOWN INDICATION
     Dosage: 1125 MG, DAILY
     Route: 065
  9. PANTOPRAZOLE SODIUM SESQUIHYDRATE [Suspect]
     Active Substance: PANTOPRAZOLE SODIUM
     Indication: PRODUCT USED FOR UNKNOWN INDICATION
     Dosage: 22.6 MG, DAILY
     Route: 065
  10. HYDROXYCHLOROQUINE [Suspect]
     Active Substance: HYDROXYCHLOROQUINE
     Indication: PRODUCT USED FOR UNKNOWN INDICATION
     Dosage: 200 MG, DAILY
     Route: 065
  11. AZATHIOPRINE. [Suspect]
     Active Substance: AZATHIOPRINE
     Indication: PRODUCT USED FOR UNKNOWN INDICATION
     Dosage: 100 MG, DAILY
     Route: 065
  12. URSODEOXYCHOLIC ACID [Suspect]
     Active Substance: URSODIOL
     Indication: PRODUCT USED FOR UNKNOWN INDICATION
     Dosage: 200 MG, DAILY
     Route: 065

REACTIONS (1)
  - Liver injury [Recovering/Resolving]
